FAERS Safety Report 10083364 (Version 2)
Quarter: 2014Q2

REPORT INFORMATION
  Report Type: Spontaneous
  Country: US (occurrence: None)
  Receive Date: 20140415
  Receipt Date: 20140501
  Transmission Date: 20141212
  Serious: Yes (Other)
  Sender: FDA-Public Use
  Company Number: 2014-US-004015

PATIENT
  Age: 32 Year
  Sex: Female

DRUGS (2)
  1. XYREM (SODIUM OXYBATE) ORAL SOLUTION, 500MG/ML [Suspect]
     Indication: NARCOLEPSY
     Route: 048
     Dates: start: 201007
  2. POTASSIUM (POTASSIUM) [Suspect]
     Indication: BLOOD POTASSIUM DECREASED

REACTIONS (7)
  - Coma [None]
  - Abortion spontaneous [None]
  - Blood potassium decreased [None]
  - Visual impairment [None]
  - Dehydration [None]
  - Feeling cold [None]
  - Panic attack [None]
